FAERS Safety Report 8187481-5 (Version None)
Quarter: 2012Q1

REPORT INFORMATION
  Report Type: 
  Country: None (occurrence: None)
  Receive Date: 20120306
  Receipt Date: 20120301
  Transmission Date: 20120608
  Serious: Yes (Hospitalization)
  Sender: FDA-Public Use
  Company Number: DE-ROCHE-1040239

PATIENT
  Sex: Female
  Weight: 54 kg

DRUGS (10)
  1. PACLITAXEL [Suspect]
     Indication: BREAST CANCER METASTATIC
     Route: 042
  2. RANITIDINE [Suspect]
     Indication: PROPHYLAXIS
     Route: 042
  3. CLEMASTINE [Suspect]
     Indication: PROPHYLAXIS
     Route: 042
  4. GRANISETRON HCL [Suspect]
     Indication: PROPHYLAXIS OF NAUSEA AND VOMITING
     Route: 042
  5. HYDROCHLOROTHIAZIDE [Suspect]
     Indication: HYPERTENSION
     Route: 048
     Dates: start: 20120101
  6. DEXAMETHASONE [Suspect]
     Indication: PROPHYLAXIS
  7. AVASTIN [Suspect]
     Indication: BREAST CANCER METASTATIC
     Route: 042
  8. CARBOPLATIN [Suspect]
     Indication: BREAST CANCER METASTATIC
     Dosage: AUC 5
     Route: 042
  9. METOPROLOL NOS [Suspect]
     Indication: HYPERTENSION
     Route: 048
     Dates: start: 20120101
  10. ENALAPRIL MALEATE [Suspect]
     Indication: HYPERTENSION
     Route: 048
     Dates: start: 20120101

REACTIONS (1)
  - LARGE INTESTINE PERFORATION [None]
